FAERS Safety Report 4831113-8 (Version None)
Quarter: 2005Q4

REPORT INFORMATION
  Report Type: 
  Country: None (occurrence: None)
  Receive Date: 20051114
  Receipt Date: 20051104
  Transmission Date: 20060501
  Serious: Yes (Death)
  Sender: FDA-Public Use
  Company Number: A-CH2005-10938

PATIENT
  Age: 60 Year
  Sex: Female

DRUGS (8)
  1. TRACLEER [Suspect]
     Indication: PULMONARY HYPERTENSION
     Dosage: ORAL
     Route: 048
     Dates: start: 20040421, end: 20051101
  2. FUROSEMIDE [Concomitant]
  3. SPIRONOLACTONE [Concomitant]
  4. ALLOPURINOL [Concomitant]
  5. AMLODIPINE [Concomitant]
  6. THEOPHYLLINE [Concomitant]
  7. ZYRTEC [Concomitant]
  8. WARFARIN SODIUM [Concomitant]

REACTIONS (5)
  - DIVERTICULAR PERFORATION [None]
  - DIVERTICULITIS [None]
  - MULTI-ORGAN FAILURE [None]
  - OFF LABEL USE [None]
  - RENAL FAILURE [None]
